FAERS Safety Report 12203414 (Version 1)
Quarter: 2016Q1

REPORT INFORMATION
  Report Type: Spontaneous
  Country: US (occurrence: None)
  Receive Date: 20160321
  Receipt Date: 20160321
  Transmission Date: 20160526
  Serious: Yes (Hospitalization)
  Sender: FDA-Public Use
  Company Number: None

PATIENT
  Age: 73 Year
  Sex: Female

DRUGS (1)
  1. LOSARTAN POTASSIUM 100MG [Suspect]
     Active Substance: LOSARTAN POTASSIUM
     Indication: BLOOD PRESSURE MEASUREMENT

REACTIONS (3)
  - Hyperkalaemia [None]
  - Dyspnoea [None]
  - Therapy change [None]

NARRATIVE: CASE EVENT DATE: 20150125
